FAERS Safety Report 4501699-1 (Version None)
Quarter: 2004Q3

REPORT INFORMATION
  Report Type: 
  Country: None (occurrence: None)
  Receive Date: 20040927
  Receipt Date: 20040602
  Transmission Date: 20050211
  Serious: No
  Sender: FDA-Public Use
  Company Number: USA040259111

PATIENT
  Age: 22 Year
  Sex: Male
  Weight: 93 kg

DRUGS (2)
  1. STRATTERA [Suspect]
     Indication: ATTENTION DEFICIT/HYPERACTIVITY DISORDER
     Dosage: 100 MG DAY
     Dates: start: 20031016, end: 20040101
  2. TOPROL-XL [Concomitant]

REACTIONS (3)
  - DRUG INEFFECTIVE [None]
  - DYSURIA [None]
  - PENILE DISCHARGE [None]
